FAERS Safety Report 20854871 (Version 1)
Quarter: 2022Q2

REPORT INFORMATION
  Report Type: Spontaneous
  Country: US (occurrence: None)
  Receive Date: 20220520
  Receipt Date: 20220520
  Transmission Date: 20220721
  Serious: No
  Sender: FDA-Public Use
  Company Number: None

PATIENT
  Age: 77 Year
  Sex: Male
  Weight: 124.6 kg

DRUGS (2)
  1. AZACITIDINE [Suspect]
     Active Substance: AZACITIDINE
     Dates: end: 20220412
  2. VENETOCLAX [Suspect]
     Active Substance: VENETOCLAX
     Dates: end: 20220502

REACTIONS (12)
  - Pancytopenia [None]
  - Urinary tract infection [None]
  - Gout [None]
  - Electrocardiogram QT prolonged [None]
  - Supraventricular tachycardia [None]
  - Anaemia [None]
  - Catheter site erythema [None]
  - Catheter site swelling [None]
  - Catheter site inflammation [None]
  - Axillary vein thrombosis [None]
  - Superficial vein thrombosis [None]
  - Brachiocephalic vein thrombosis [None]

NARRATIVE: CASE EVENT DATE: 20220411
